FAERS Safety Report 8919268 (Version 1)
Quarter: 2012Q4

REPORT INFORMATION
  Report Type: 
  Country: US (occurrence: US)
  Receive Date: 20121121
  Receipt Date: 20121121
  Transmission Date: 20130627
  Serious: No
  Sender: FDA-Public Use
  Company Number: US-PFIZER INC-2012285730

PATIENT
  Age: 65 Year
  Sex: Female

DRUGS (2)
  1. AXITINIB [Suspect]
     Indication: RENAL CELL CARCINOMA
     Dosage: 5 mg, 1x/day
     Route: 048
     Dates: start: 201208
  2. AXITINIB [Suspect]
     Dosage: 7.5 mg, 1x/day
     Route: 048
     Dates: start: 201210

REACTIONS (1)
  - Fatigue [Unknown]
